FAERS Safety Report 4616351-1 (Version None)
Quarter: 2005Q1

REPORT INFORMATION
  Report Type: 
  Country: None (occurrence: None)
  Receive Date: 20050321
  Receipt Date: 20040426
  Transmission Date: 20050727
  Serious: Yes (Hospitalization)
  Sender: FDA-Public Use
  Company Number: 7912

PATIENT
  Age: 57 Year
  Sex: Male

DRUGS (4)
  1. FLUPHENAZINE [Suspect]
     Indication: BIPOLAR DISORDER
     Dosage: 20 MG DAILY
  2. DIVALPROEX SODIUM [Suspect]
     Indication: BIPOLAR DISORDER
     Dosage: 2500 MG DAILY
  3. OLANZAPINE [Suspect]
     Indication: BIPOLAR DISORDER
     Dosage: 30 MG DAILY
  4. BENZTROPINE MESYLATE [Suspect]
     Indication: BIPOLAR DISORDER
     Dosage: 2 MG DAILY

REACTIONS (8)
  - BLOOD AMYLASE INCREASED [None]
  - CELLULITIS [None]
  - FLUID INTAKE REDUCED [None]
  - LIPASE INCREASED [None]
  - NEUROLEPTIC MALIGNANT SYNDROME [None]
  - ORAL INTAKE REDUCED [None]
  - PNEUMONIA ASPIRATION [None]
  - RESPIRATORY DISTRESS [None]
